FAERS Safety Report 23506046 (Version 1)
Quarter: 2024Q1

REPORT INFORMATION
  Report Type: Spontaneous
  Country: US (occurrence: US)
  Receive Date: 20240209
  Receipt Date: 20240209
  Transmission Date: 20240410
  Serious: No
  Sender: FDA-Public Use
  Company Number: US-009507513-2402USA000195

PATIENT
  Age: 74 Year
  Sex: Male

DRUGS (2)
  1. CUBICIN [Suspect]
     Active Substance: DAPTOMYCIN
     Indication: Osteomyelitis
     Dosage: UNK
  2. APIXABAN [Concomitant]
     Active Substance: APIXABAN
     Indication: Haemorrhage prophylaxis
     Dosage: UNK

REACTIONS (1)
  - Product use in unapproved indication [Unknown]
